FAERS Safety Report 8767600 (Version 5)
Quarter: 2014Q1

REPORT INFORMATION
  Report Type: Report from Study
  Country: JP (occurrence: JP)
  Receive Date: 20120904
  Receipt Date: 20140114
  Transmission Date: 20141002
  Serious: Yes (Hospitalization)
  Sender: FDA-Public Use
  Company Number: JP-VERTEX PHARMACEUTICAL INC.-AE-2012-003669

PATIENT
  Age: 67 Year
  Sex: Male

DRUGS (5)
  1. VX-950 (TELAPREVIR) [Suspect]
     Indication: CHRONIC HEPATITIS C
     Dosage: 1500 MG, QD
     Route: 048
     Dates: start: 20120228, end: 20120308
  2. PEGINTRON [Concomitant]
     Dosage: 1.0 ?G/KG, QW
     Route: 058
     Dates: start: 20120228, end: 20120308
  3. REBETOL [Concomitant]
     Dosage: 800 MG, QD
     Route: 048
     Dates: start: 20120228, end: 20120308
  4. URDESTON [Concomitant]
     Dosage: 600 MG, QD
     Route: 048
     Dates: start: 20120330
  5. GLYCRON [Concomitant]
     Dosage: 3 DF, QD
     Route: 048
     Dates: start: 20120330

REACTIONS (1)
  - Drug eruption [Recovered/Resolved]
